FAERS Safety Report 4555388-8 (Version None)
Quarter: 2005Q1

REPORT INFORMATION
  Report Type: 
  Country: None (occurrence: None)
  Receive Date: 20050118
  Receipt Date: 20050118
  Transmission Date: 20050727
  Serious: Yes (Hospitalization)
  Sender: FDA-Public Use
  Company Number: None

PATIENT
  Age: 56 Year
  Sex: Male

DRUGS (8)
  1. OCTREOTIDE [Suspect]
     Indication: UPPER GASTROINTESTINAL HAEMORRHAGE
     Dosage: 0.05 MG /1 ML
     Dates: start: 20041116, end: 20041117
  2. ACETAMINOPHEN AND CODEINE PHOSPHATE [Concomitant]
  3. DOCUSATE SODIUM [Concomitant]
  4. HUMULIN R [Concomitant]
  5. LISINOPRIL [Concomitant]
  6. METOPROLOL [Concomitant]
  7. PANTOPRAZOLE [Concomitant]
  8. SORBITOL SOLN [Concomitant]

REACTIONS (2)
  - ATRIOVENTRICULAR BLOCK COMPLETE [None]
  - NODAL RHYTHM [None]
